FAERS Safety Report 22148023 (Version 1)
Quarter: 2023Q1

REPORT INFORMATION
  Report Type: Spontaneous
  Country: PT (occurrence: PT)
  Receive Date: 20230328
  Receipt Date: 20230328
  Transmission Date: 20230418
  Serious: Yes (Other)
  Sender: FDA-Public Use
  Company Number: PT-ORGANON-O2303PRT002421

PATIENT
  Age: 77 Year
  Sex: Male

DRUGS (2)
  1. ATORVASTATIN CALCIUM\EZETIMIBE [Suspect]
     Active Substance: ATORVASTATIN CALCIUM\EZETIMIBE
     Dosage: UNK, CONCENTRATION: 10/40 (UNITS NOT PROVIDED)
     Route: 048
     Dates: start: 2014
  2. ATORVASTATIN CALCIUM\EZETIMIBE [Suspect]
     Active Substance: ATORVASTATIN CALCIUM\EZETIMIBE
     Dosage: UNK, CONCENTRATION: 10/10 (UNITS NOT PROVIDED)
     Route: 048
     Dates: start: 202301

REACTIONS (1)
  - Brachial artery entrapment syndrome [Unknown]

NARRATIVE: CASE EVENT DATE: 20221101
